FAERS Safety Report 5386059-6 (Version None)
Quarter: 2007Q3

REPORT INFORMATION
  Report Type: 
  Country: None (occurrence: None)
  Receive Date: 20070710
  Receipt Date: 20070607
  Transmission Date: 20080115
  Serious: Yes (Death)
  Sender: FDA-Public Use
  Company Number: GXBR2007US01288

PATIENT
  Age: 47 Year
  Sex: Female

DRUGS (11)
  1. PHENTERMINE HYDROCHLORIDE [Suspect]
  2. AMITRIPTYLINE HCL [Suspect]
     Indication: DEPRESSION
  3. ALPRAZOLAM [Suspect]
     Indication: ANXIETY
  4. FLURAZEPAM [Suspect]
  5. NORTRIPTYLINE HCL [Suspect]
  6. PAXIL [Suspect]
  7. OXYCODONE HCL [Suspect]
  8. ACETAMINOPHEN [Suspect]
  9. CAFFEINE (CAFFEINE) [Suspect]
  10. NICOTINE [Suspect]
  11. ETHANOL (ETHANOL) [Suspect]

REACTIONS (3)
  - COMPLETED SUICIDE [None]
  - DRUG TOXICITY [None]
  - MULTIPLE DRUG OVERDOSE [None]
